FAERS Safety Report 7818036-7 (Version None)
Quarter: 2011Q4

REPORT INFORMATION
  Report Type: 
  Country: None (occurrence: None)
  Receive Date: 20111017
  Receipt Date: 20111011
  Transmission Date: 20120403
  Serious: Yes (Other)
  Sender: FDA-Public Use
  Company Number: PT-BAYER-2011-097748

PATIENT
  Age: 50 Year
  Sex: Female

DRUGS (1)
  1. INTERFERON BETA-1B [Suspect]
     Indication: SECONDARY PROGRESSIVE MULTIPLE SCLEROSIS
     Dosage: 250 ?G, QOD
     Route: 058
     Dates: start: 20011023

REACTIONS (5)
  - INJECTION SITE REACTION [None]
  - ABDOMINAL MASS [None]
  - BREAST MASS [None]
  - MULTIPLE SCLEROSIS RELAPSE [None]
  - DIPLOPIA [None]
